FAERS Safety Report 26205706 (Version 1)
Quarter: 2025Q4

REPORT INFORMATION
  Report Type: Report from Study
  Country: US (occurrence: US)
  Receive Date: 20251229
  Receipt Date: 20251229
  Transmission Date: 20260118
  Serious: Yes (Hospitalization)
  Sender: BEIGENE
  Company Number: US-BEONEMEDICINES-BGN-2025-023724

PATIENT
  Sex: Male
  Weight: 76.989 kg

DRUGS (10)
  1. BRUKINSA [Suspect]
     Active Substance: ZANUBRUTINIB
     Indication: Mantle cell lymphoma
     Dosage: 160 MILLIGRAM DAILY
  2. BRUKINSA [Suspect]
     Active Substance: ZANUBRUTINIB
     Dosage: 160 MILLIGRAM DAILY
  3. BRUKINSA [Suspect]
     Active Substance: ZANUBRUTINIB
     Indication: Mantle cell lymphoma
     Dosage: 160 MILLIGRAM, DAILY
     Route: 061
  4. BRUKINSA [Suspect]
     Active Substance: ZANUBRUTINIB
     Dosage: 160 MILLIGRAM, DAILY
     Route: 048
  5. BRUKINSA [Suspect]
     Active Substance: ZANUBRUTINIB
     Dosage: 160 MILLIGRAM, DAILY
     Route: 048
  6. BRUKINSA [Suspect]
     Active Substance: ZANUBRUTINIB
     Dosage: 160 MILLIGRAM, DAILY
     Route: 061
  7. VENCLEXTA [Concomitant]
     Active Substance: VENETOCLAX
     Indication: Mantle cell lymphoma
     Dosage: 400 MILLIGRAM, DAILY
     Route: 061
  8. VENCLEXTA [Concomitant]
     Active Substance: VENETOCLAX
     Dosage: 400 MILLIGRAM, DAILY
     Route: 048
  9. VENCLEXTA [Concomitant]
     Active Substance: VENETOCLAX
     Dosage: 400 MILLIGRAM, DAILY
     Route: 048
  10. VENCLEXTA [Concomitant]
     Active Substance: VENETOCLAX
     Dosage: 400 MILLIGRAM, DAILY
     Route: 061

REACTIONS (6)
  - Rash [Unknown]
  - Eczema [Unknown]
  - Platelet count decreased [Unknown]
  - Diarrhoea [Unknown]
  - Sunburn [Unknown]
  - Product dose omission issue [Unknown]
